FAERS Safety Report 9945202 (Version 1)
Quarter: 2014Q1

REPORT INFORMATION
  Report Type: Report from Study
  Country: US (occurrence: US)
  Receive Date: 20140303
  Receipt Date: 20140303
  Transmission Date: 20141002
  Serious: No
  Sender: FDA-Public Use
  Company Number: US-ABBVIE-13P-163-1053701-00

PATIENT
  Age: 54 Year
  Sex: Female

DRUGS (4)
  1. HUMIRA [Suspect]
     Indication: RHEUMATOID ARTHRITIS
     Route: 058
     Dates: start: 2003, end: 201212
  2. HUMIRA [Suspect]
     Route: 058
     Dates: start: 20130103, end: 20130103
  3. AZATHIOPRINE [Concomitant]
     Indication: RHEUMATOID ARTHRITIS
  4. PAIN MEDICATION [Concomitant]
     Indication: RHEUMATOID ARTHRITIS

REACTIONS (5)
  - Fatigue [Not Recovered/Not Resolved]
  - Fatigue [Not Recovered/Not Resolved]
  - Asthenia [Not Recovered/Not Resolved]
  - Stress [Unknown]
  - Drug dose omission [Unknown]
